FAERS Safety Report 11341846 (Version 2)
Quarter: 2015Q4

REPORT INFORMATION
  Report Type: Spontaneous
  Country: CN (occurrence: CN)
  Receive Date: 20150805
  Receipt Date: 20151103
  Transmission Date: 20160304
  Serious: Yes (Death, Hospitalization)
  Sender: FDA-Public Use
  Company Number: CN-PFIZER INC-2015247251

PATIENT
  Age: 52 Year
  Sex: Male

DRUGS (1)
  1. SUTENT [Suspect]
     Active Substance: SUNITINIB MALATE
     Indication: GASTROINTESTINAL STROMAL TUMOUR
     Dosage: UNK
     Route: 048
     Dates: start: 2015

REACTIONS (3)
  - Abasia [Unknown]
  - Disease progression [Fatal]
  - Gastrointestinal stromal tumour [Fatal]

NARRATIVE: CASE EVENT DATE: 2015
